FAERS Safety Report 5009936-4 (Version None)
Quarter: 2006Q2

REPORT INFORMATION
  Report Type: 
  Country: None (occurrence: None)
  Receive Date: 20060522
  Receipt Date: 20060510
  Transmission Date: 20061013
  Serious: Yes (Death)
  Sender: FDA-Public Use
  Company Number: 2006063612

PATIENT
  Age: 61 Year
  Sex: Male
  Weight: 81.2 kg

DRUGS (2)
  1. NICORETTE [Suspect]
     Indication: SMOKING CESSATION THERAPY
     Dosage: 15MG PATCH, FREQUENCY, TRANSDERMAL
     Route: 062
  2. NICOTINE [Suspect]
     Dosage: 1MG LOZENGE, FREQUENCY, ORAL
     Route: 048

REACTIONS (2)
  - FALL [None]
  - MYOCARDIAL INFARCTION [None]
